FAERS Safety Report 6930332-4 (Version None)
Quarter: 2010Q3

REPORT INFORMATION
  Report Type: 
  Country: None (occurrence: None)
  Receive Date: 20100813
  Receipt Date: 20100730
  Transmission Date: 20110219
  Serious: Yes (Death, Congenital Anomaly)
  Sender: FDA-Public Use
  Company Number: 7012971

PATIENT

DRUGS (1)
  1. SEROPHENE [Suspect]
     Indication: INFERTILITY
     Dosage: 50 MG, DRUG TAKEN BY PATIENT'S MOTHER
     Dates: start: 20091001, end: 20091201

REACTIONS (4)
  - CONGENITAL ANOMALY [None]
  - FOETAL CYSTIC HYGROMA [None]
  - INTRA-UTERINE DEATH [None]
  - MATERNAL DRUGS AFFECTING FOETUS [None]
